FAERS Safety Report 15458768 (Version 3)
Quarter: 2018Q4

REPORT INFORMATION
  Report Type: Spontaneous
  Country: TR (occurrence: TR)
  Receive Date: 20181003
  Receipt Date: 20181121
  Transmission Date: 20190204
  Serious: Yes (Life-Threatening, Other)
  Sender: FDA-Public Use
  Company Number: TR-INCYTE CORPORATION-2018IN010036

PATIENT

DRUGS (2)
  1. JAKAVI [Suspect]
     Active Substance: RUXOLITINIB
     Indication: MYELOFIBROSIS
     Dosage: 20 MG, BID
     Route: 048
  2. CORASPIN [Concomitant]
     Active Substance: ASPIRIN
     Indication: PRODUCT USED FOR UNKNOWN INDICATION
     Dosage: 100 MG, QD
     Route: 065

REACTIONS (4)
  - Cough [Unknown]
  - Pulmonary mass [Unknown]
  - Syncope [Unknown]
  - Lung squamous cell carcinoma stage III [Not Recovered/Not Resolved]

NARRATIVE: CASE EVENT DATE: 20180924
